FAERS Safety Report 7473658-0 (Version None)
Quarter: 2011Q2

REPORT INFORMATION
  Report Type: 
  Country: None (occurrence: None)
  Receive Date: 20110511
  Receipt Date: 20110502
  Transmission Date: 20111010
  Serious: Yes (Life-Threatening, Hospitalization, Other)
  Sender: FDA-Public Use
  Company Number: US-BAYER-201032832NA

PATIENT
  Age: 29 Year
  Sex: Female
  Weight: 64.399 kg

DRUGS (5)
  1. PRILOSEC [Concomitant]
     Dosage: 20 MG, QD
     Route: 048
  2. WELLBUTRIN [Concomitant]
     Dosage: 150 MG, QD
     Route: 048
  3. YAZ [Suspect]
     Indication: CONTRACEPTION
     Dosage: UNK UNK, QD
     Route: 048
     Dates: start: 20080101, end: 20100101
  4. YAZ [Suspect]
     Indication: PREMENSTRUAL SYNDROME
  5. FLUCONAZOLE [Concomitant]
     Dosage: 150 MG, UNK

REACTIONS (3)
  - GALLBLADDER NON-FUNCTIONING [None]
  - CHOLECYSTITIS CHRONIC [None]
  - INJURY [None]
